FAERS Safety Report 5967015-3 (Version None)
Quarter: 2008Q4

REPORT INFORMATION
  Report Type: 
  Country: None (occurrence: None)
  Receive Date: 20081125
  Receipt Date: 20081111
  Transmission Date: 20090506
  Serious: Yes (Other)
  Sender: FDA-Public Use
  Company Number: US-ELI_LILLY_AND_COMPANY-US200811002777

PATIENT
  Sex: Female

DRUGS (11)
  1. FORTEO [Suspect]
     Dosage: 20 UG, DAILY (1/D)
     Dates: start: 20070201, end: 20070301
  2. FORTEO [Interacting]
     Dosage: 20 UG, DAILY (1/D)
     Dates: start: 20080226
  3. GABAPENTIN [Concomitant]
     Dosage: 400 MG, EVERY 4 HRS
  4. LEVOXYL [Concomitant]
     Indication: THYROID DISORDER
     Dosage: 12.5 MG, 2/W
  5. CALCIUM [Concomitant]
     Dosage: 600 MG, 2/D
     Dates: end: 20081110
  6. VITAMIN D [Concomitant]
     Dosage: 50000 U, 2/W
  7. ZANTAC [Concomitant]
     Indication: DYSPEPSIA
     Dosage: 150 MG, AS NEEDED
  8. ZOMIG [Concomitant]
     Indication: MIGRAINE
     Dosage: 5 MG, AS NEEDED UP TO 18 TABLETS/MO
  9. LOPERAMIDE HCL [Concomitant]
     Indication: DIARRHOEA
     Dosage: 2 MG, AS NEEDED UP TO 12 CAPSULES PER DAY
  10. VITAMIN B-12 [Concomitant]
     Dosage: 1 D/F, 2/M
  11. HYDROXYZINE [Concomitant]
     Dosage: 50 MG, AS NEEDED

REACTIONS (40)
  - ARTHRITIS [None]
  - BLOOD PRESSURE INCREASED [None]
  - BONE DISORDER [None]
  - DIARRHOEA [None]
  - DISTURBANCE IN ATTENTION [None]
  - DIZZINESS [None]
  - DRUG INTERACTION [None]
  - DYSPEPSIA [None]
  - FALL [None]
  - FEELING HOT [None]
  - FEELING JITTERY [None]
  - FIBROMYALGIA [None]
  - FLUSHING [None]
  - FOOT FRACTURE [None]
  - GASTROOESOPHAGEAL REFLUX DISEASE [None]
  - HAEMORRHOIDS [None]
  - HIATUS HERNIA [None]
  - HYPERHIDROSIS [None]
  - HYPOAESTHESIA [None]
  - MIGRAINE [None]
  - MOTOR DYSFUNCTION [None]
  - MUSCLE SPASMS [None]
  - MUSCULAR WEAKNESS [None]
  - MUSCULOSKELETAL PAIN [None]
  - MUSCULOSKELETAL STIFFNESS [None]
  - NAUSEA [None]
  - OESOPHAGEAL PAIN [None]
  - OESOPHAGEAL SPASM [None]
  - OSTEOARTHRITIS [None]
  - PAIN [None]
  - PAIN IN EXTREMITY [None]
  - PALPITATIONS [None]
  - PARAESTHESIA [None]
  - PELVIC FRACTURE [None]
  - POLYURIA [None]
  - SENSORY DISTURBANCE [None]
  - THYROID DISORDER [None]
  - TINNITUS [None]
  - TREMOR [None]
  - UPPER LIMB FRACTURE [None]
